FAERS Safety Report 4443592-9 (Version None)
Quarter: 2004Q3

REPORT INFORMATION
  Report Type: 
  Country: None (occurrence: None)
  Receive Date: 20040903
  Receipt Date: 20040825
  Transmission Date: 20050211
  Serious: Yes (Death)
  Sender: FDA-Public Use
  Company Number: 2004UW12929

PATIENT
  Age: 75 Year
  Sex: Female

DRUGS (6)
  1. CRESTOR [Suspect]
     Indication: BLOOD CHOLESTEROL INCREASED
     Dosage: 10 MG QD PO
     Route: 048
     Dates: start: 20040609, end: 20040621
  2. LODINE [Concomitant]
  3. ASPIRIN [Concomitant]
  4. GLUCOSAMINE [Concomitant]
  5. ZIAC [Concomitant]
  6. ALAVERT [Concomitant]

REACTIONS (5)
  - BILE DUCT OBSTRUCTION [None]
  - GALLBLADDER OBSTRUCTION [None]
  - METASTASES TO LIVER [None]
  - MYALGIA [None]
  - PANCREATIC CARCINOMA [None]
